FAERS Safety Report 20480361 (Version 1)
Quarter: 2022Q1

REPORT INFORMATION
  Report Type: Report from Study
  Country: FR (occurrence: FR)
  Receive Date: 20220216
  Receipt Date: 20220216
  Transmission Date: 20220423
  Serious: Yes (Hospitalization, Other)
  Sender: FDA-Public Use
  Company Number: FR-BIOGARAN-B22000140

PATIENT
  Age: 64 Year
  Sex: Male
  Weight: 84 kg

DRUGS (7)
  1. ALPRAZOLAM [Interacting]
     Active Substance: ALPRAZOLAM
     Route: 065
  2. AMLODIPINE BESYLATE [Interacting]
     Active Substance: AMLODIPINE BESYLATE
     Route: 065
  3. GLICLAZIDE [Interacting]
     Active Substance: GLICLAZIDE
     Route: 065
  4. RIVAROXABAN [Interacting]
     Active Substance: RIVAROXABAN
     Indication: Atrial fibrillation
     Dosage: 21 X 20 MG (420 MG)
     Route: 065
  5. PERINDOPRIL [Interacting]
     Active Substance: PERINDOPRIL
     Route: 065
  6. AMIODARONE [Interacting]
     Active Substance: AMIODARONE
     Route: 065
  7. ZOPICLONE [Interacting]
     Active Substance: ZOPICLONE
     Route: 065

REACTIONS (5)
  - Intentional overdose [Unknown]
  - Drug interaction [Unknown]
  - Acute kidney injury [Unknown]
  - Suicide attempt [Unknown]
  - Distributive shock [Unknown]
